FAERS Safety Report 14517920 (Version 9)
Quarter: 2018Q3

REPORT INFORMATION
  Report Type: Spontaneous
  Country: PR (occurrence: PR)
  Receive Date: 20180212
  Receipt Date: 20180807
  Transmission Date: 20181010
  Serious: Yes (Death, Hospitalization, Other)
  Sender: FDA-Public Use
  Company Number: PR-PFIZER INC-2018057586

PATIENT
  Age: 73 Year
  Sex: Female
  Weight: 63.39 kg

DRUGS (5)
  1. SUTENT [Suspect]
     Active Substance: SUNITINIB MALATE
     Dosage: 37.5 MG, DAILY
     Route: 048
     Dates: start: 20180629
  2. SUTENT [Suspect]
     Active Substance: SUNITINIB MALATE
     Dosage: 37.5 MG, DAILY
     Route: 048
     Dates: start: 20180110
  3. SUTENT [Suspect]
     Active Substance: SUNITINIB MALATE
     Dosage: 50 MG , DAILY (FOR 28 DAYS)
     Route: 048
     Dates: start: 20180110, end: 20180430
  4. SUTENT [Suspect]
     Active Substance: SUNITINIB MALATE
     Indication: RENAL CANCER
     Dosage: 50 MG, DAILY (28 DAYS)
     Route: 048
     Dates: start: 20180110, end: 2018
  5. SUTENT [Suspect]
     Active Substance: SUNITINIB MALATE
     Dosage: 37.5 MG, DAILY
     Route: 048
     Dates: start: 20180110

REACTIONS (16)
  - Pain [Unknown]
  - Death [Fatal]
  - Erythema [Recovering/Resolving]
  - Dysgeusia [Not Recovered/Not Resolved]
  - Decreased appetite [Unknown]
  - Platelet count decreased [Unknown]
  - Urinary tract infection [Unknown]
  - Dysuria [Unknown]
  - White blood cell count decreased [Unknown]
  - Constipation [Unknown]
  - Jaundice [Unknown]
  - Ageusia [Unknown]
  - Glossodynia [Not Recovered/Not Resolved]
  - Sepsis [Unknown]
  - Yellow skin [Recovering/Resolving]
  - Anal haemorrhage [Unknown]

NARRATIVE: CASE EVENT DATE: 2018
